FAERS Safety Report 17769923 (Version 2)
Quarter: 2024Q2

REPORT INFORMATION
  Report Type: Spontaneous
  Country: US (occurrence: JP)
  Receive Date: 20200512
  Receipt Date: 20240612
  Transmission Date: 20240716
  Serious: Yes (Death, Other)
  Sender: FDA-Public Use
  Company Number: US-PFIZER INC-2020178601

PATIENT
  Age: 67 Year
  Sex: Male

DRUGS (1)
  1. THROMBIN [Suspect]
     Active Substance: THROMBIN
     Indication: Gastric ulcer haemorrhage
     Dosage: TOPICAL THROMBIN INTO A NASOGASTRIC TUBE
     Dates: start: 199804

REACTIONS (6)
  - Incorrect route of product administration [Fatal]
  - Seizure [Fatal]
  - Shock [Fatal]
  - Acute kidney injury [Fatal]
  - Disseminated intravascular coagulation [Fatal]
  - Cerebral thrombosis [Fatal]

NARRATIVE: CASE EVENT DATE: 19980401
